FAERS Safety Report 5680543-3 (Version None)
Quarter: 2008Q1

REPORT INFORMATION
  Report Type: 
  Country: None (occurrence: None)
  Receive Date: 20080326
  Receipt Date: 20080320
  Transmission Date: 20080703
  Serious: Yes (Hospitalization)
  Sender: FDA-Public Use
  Company Number: US-MERCK-0803USA03638

PATIENT
  Age: 57 Year
  Sex: Male

DRUGS (2)
  1. PRIMAXIN [Suspect]
     Route: 042
     Dates: start: 20030801, end: 20030801
  2. VANCOMYCIN [Concomitant]
     Route: 065
     Dates: start: 20030801

REACTIONS (4)
  - CHILLS [None]
  - CONVULSION [None]
  - DYSPNOEA [None]
  - HYPERHIDROSIS [None]
